FAERS Safety Report 21663898 (Version 1)
Quarter: 2022Q4

REPORT INFORMATION
  Report Type: Spontaneous
  Country: US (occurrence: US)
  Receive Date: 20221130
  Receipt Date: 20221130
  Transmission Date: 20230113
  Serious: Yes (Death)
  Sender: FDA-Public Use
  Company Number: US-CHIESI-2022CHF06297

PATIENT
  Age: 10 Year
  Sex: Female

DRUGS (5)
  1. BETHKIS [Suspect]
     Active Substance: TOBRAMYCIN
     Indication: Lung disorder
     Dosage: 300 MILLIGRAM, BID
     Dates: start: 202112, end: 2022
  2. BETHKIS [Suspect]
     Active Substance: TOBRAMYCIN
     Indication: Bacterial infection
  3. BETHKIS [Suspect]
     Active Substance: TOBRAMYCIN
     Indication: Epilepsy
  4. BETHKIS [Suspect]
     Active Substance: TOBRAMYCIN
     Indication: General symptom
  5. BETHKIS [Suspect]
     Active Substance: TOBRAMYCIN
     Indication: Off label use

REACTIONS (2)
  - Death [Fatal]
  - Off label use [Recovered/Resolved]

NARRATIVE: CASE EVENT DATE: 20211201
